FAERS Safety Report 26019498 (Version 1)
Quarter: 2025Q4

REPORT INFORMATION
  Report Type: Report from Study
  Country: GB (occurrence: GB)
  Receive Date: 20251110
  Receipt Date: 20251110
  Transmission Date: 20260118
  Serious: Yes (Other)
  Sender: AMGEN
  Company Number: GB-AMGEN-GBRSL2025217641

PATIENT
  Sex: Male

DRUGS (1)
  1. USTEKINUMAB [Suspect]
     Active Substance: USTEKINUMAB
     Indication: Psoriasis
     Dosage: 90 MILLIGRAM, Q8WK
     Route: 058

REACTIONS (5)
  - Loss of consciousness [Unknown]
  - Urticaria [Unknown]
  - Lip swelling [Unknown]
  - Injection site swelling [Unknown]
  - Psoriasis [Unknown]
